FAERS Safety Report 7075064-X (Version None)
Quarter: 2010Q4

REPORT INFORMATION
  Report Type: 
  Country: None (occurrence: None)
  Receive Date: 20101029
  Receipt Date: 20100223
  Transmission Date: 20110411
  Serious: No
  Sender: FDA-Public Use
  Company Number: US-WYE-H13777610

PATIENT
  Sex: Female

DRUGS (2)
  1. ADVIL PM [Suspect]
     Indication: ANALGESIC THERAPY
     Dosage: 2 CAPLETS AS NEEDED
     Route: 048
     Dates: start: 20050101
  2. ADVIL PM [Suspect]
     Indication: INSOMNIA

REACTIONS (1)
  - RASH [None]
